FAERS Safety Report 8504399-6 (Version None)
Quarter: 2012Q3

REPORT INFORMATION
  Report Type: 
  Country: None (occurrence: None)
  Receive Date: 20120711
  Receipt Date: 20120709
  Transmission Date: 20120928
  Serious: No
  Sender: FDA-Public Use
  Company Number: US-PFIZER INC-2012164500

PATIENT
  Sex: Female

DRUGS (1)
  1. SOLU-MEDROL [Suspect]
     Indication: NEUROMYELITIS OPTICA
     Dosage: 500 MG, UNK

REACTIONS (2)
  - PRODUCT QUALITY ISSUE [None]
  - OFF LABEL USE [None]
